FAERS Safety Report 6530995-1 (Version None)
Quarter: 2010Q1

REPORT INFORMATION
  Report Type: 
  Country: None (occurrence: None)
  Receive Date: 20100108
  Receipt Date: 20090817
  Transmission Date: 20100710
  Serious: No
  Sender: FDA-Public Use
  Company Number: A0802508A

PATIENT
  Age: 79 Year
  Sex: Female

DRUGS (2)
  1. LOVAZA [Suspect]
     Dosage: 2CAP PER DAY
     Route: 048
     Dates: start: 20070101
  2. LEVOXYL [Concomitant]

REACTIONS (2)
  - HYPERVIGILANCE [None]
  - PSYCHOMOTOR HYPERACTIVITY [None]
